FAERS Safety Report 23772615 (Version 1)
Quarter: 2024Q2

REPORT INFORMATION
  Report Type: Spontaneous
  Country: US (occurrence: None)
  Receive Date: 20240422
  Receipt Date: 20240422
  Transmission Date: 20240716
  Serious: Yes (Hospitalization)
  Sender: FDA-Public Use
  Company Number: None

PATIENT
  Sex: Female

DRUGS (3)
  1. DEFERASIROX [Suspect]
     Active Substance: DEFERASIROX
     Dosage: FREQUENCY : DAILY;?
     Route: 048
     Dates: start: 202312
  2. NUZYRA [Concomitant]
     Active Substance: OMADACYCLINE
  3. DUPIXENT [Concomitant]

REACTIONS (5)
  - Drug hypersensitivity [None]
  - Urticaria [None]
  - Nausea [None]
  - Vomiting [None]
  - Dyspnoea [None]
